FAERS Safety Report 7153330-7 (Version None)
Quarter: 2010Q4

REPORT INFORMATION
  Report Type: 
  Country: None (occurrence: None)
  Receive Date: 20101213
  Receipt Date: 20101201
  Transmission Date: 20110411
  Serious: Yes (Other)
  Sender: FDA-Public Use
  Company Number: JP-ROCHE-746917

PATIENT
  Age: 54 Year
  Sex: Female

DRUGS (3)
  1. XELODA [Suspect]
     Indication: BREAST CANCER
     Dosage: DOSAGE IS UNCERTAIN.
     Route: 048
  2. PHENYTOIN [Interacting]
     Indication: EPILEPSY
     Dosage: DOSAGE IS UNCERTAIN.
     Route: 065
  3. PHENYTOIN [Interacting]
     Route: 065

REACTIONS (2)
  - DRUG INTERACTION [None]
  - THERAPEUTIC AGENT TOXICITY [None]
